FAERS Safety Report 7900767-1 (Version None)
Quarter: 2011Q4

REPORT INFORMATION
  Report Type: 
  Country: None (occurrence: None)
  Receive Date: 20111104
  Receipt Date: 20111021
  Transmission Date: 20120403
  Serious: No
  Sender: FDA-Public Use
  Company Number: TPA2011A04522

PATIENT
  Age: 79 Year
  Sex: Male
  Weight: 88.905 kg

DRUGS (14)
  1. ASPIRIN [Concomitant]
  2. ACTOS [Suspect]
     Indication: TYPE 2 DIABETES MELLITUS
     Dosage: 15 MG, 1 IN 1 D, PER ORAL 30 MG, 1 IN 1 D
     Route: 048
     Dates: start: 20101029, end: 20110729
  3. ACTOS [Suspect]
     Indication: TYPE 2 DIABETES MELLITUS
     Dosage: 15 MG, 1 IN 1 D, PER ORAL 30 MG, 1 IN 1 D
     Route: 048
     Dates: start: 20090101
  4. GLUCOSAMINE-CHONDROITIN (GLUCOSAMINE, CHONDROITIN SULFATE) [Concomitant]
  5. METOPROLOL SUCCINATE [Concomitant]
  6. JANUVIA [Concomitant]
  7. LISINOPRIL [Concomitant]
  8. CENTRUM SILVER (ASCORBIC ACID, TOCOPHERYL ACETATE, RETINOL, ZINC, CALC [Concomitant]
  9. PLAVIX [Concomitant]
  10. ASACOL [Concomitant]
  11. CINNAMON (CINNAMOMUN VERUM) [Concomitant]
  12. FINASTERIDE [Concomitant]
  13. PRAVASTATIN SODIUM [Concomitant]
  14. VITAMIN D [Concomitant]

REACTIONS (1)
  - BLOOD GLUCOSE INCREASED [None]
